FAERS Safety Report 5156909-7 (Version None)
Quarter: 2006Q4

REPORT INFORMATION
  Report Type: 
  Country: None (occurrence: None)
  Receive Date: 20060918
  Receipt Date: 20060629
  Transmission Date: 20070319
  Serious: Yes (Hospitalization)
  Sender: FDA-Public Use
  Company Number: US-JNJFOC-20060700287

PATIENT
  Age: 48 Year
  Sex: Female
  Weight: 78.4723 kg

DRUGS (2)
  1. TOPAMAX [Suspect]
     Indication: MIGRAINE PROPHYLAXIS
     Dosage: 200 MG 2 IN 1 DAY ORAL
     Route: 048
     Dates: start: 20030101
  2. VERAPAMIL [Concomitant]

REACTIONS (2)
  - AMENORRHOEA [None]
  - NEPHROLITHIASIS [None]
